FAERS Safety Report 16439133 (Version 4)
Quarter: 2019Q4

REPORT INFORMATION
  Report Type: Spontaneous
  Country: US (occurrence: US)
  Receive Date: 20190617
  Receipt Date: 20191121
  Transmission Date: 20200122
  Serious: Yes (Other)
  Sender: FDA-Public Use
  Company Number: US-PFIZER INC-2019208012

PATIENT
  Age: 43 Year
  Sex: Female
  Weight: 84 kg

DRUGS (3)
  1. LYRICA [Suspect]
     Active Substance: PREGABALIN
     Indication: NEUROPATHY PERIPHERAL
     Dosage: 200 MG, 1X/DAY, (TAKE FOUR CAPSULES BY MOUTH AT BEDTIME)
     Route: 048
     Dates: start: 2015
  2. GABAPENTIN. [Concomitant]
     Active Substance: GABAPENTIN
     Indication: NEUROPATHY PERIPHERAL
     Dosage: 800 MG, 3X/DAY
  3. GABAPENTIN. [Concomitant]
     Active Substance: GABAPENTIN
     Dosage: 800 MG, UNK
     Route: 048
     Dates: start: 2015

REACTIONS (10)
  - Swelling [Unknown]
  - Cardiac disorder [Unknown]
  - Fatigue [Unknown]
  - Macular degeneration [Unknown]
  - Dyspnoea [Unknown]
  - Eye disorder [Unknown]
  - Asthma [Unknown]
  - Histoplasmosis [Unknown]
  - Back disorder [Unknown]
  - Gait disturbance [Unknown]
